FAERS Safety Report 7824529-9 (Version None)
Quarter: 2011Q4

REPORT INFORMATION
  Report Type: 
  Country: None (occurrence: None)
  Receive Date: 20111019
  Receipt Date: 20111006
  Transmission Date: 20120403
  Serious: Yes (Hospitalization, Other)
  Sender: FDA-Public Use
  Company Number: US-BAYER-201038038NA

PATIENT
  Age: 37 Year
  Sex: Female
  Weight: 79.365 kg

DRUGS (7)
  1. CEPHALEXIN [Concomitant]
     Dosage: 500 MG, UNK
     Dates: start: 20061112
  2. ACETAMINOPHEN AND OXYCODONE HCL [Concomitant]
     Dosage: UNK
     Dates: start: 20061110
  3. YAZ [Suspect]
     Dosage: UNK
     Route: 048
     Dates: start: 20050301, end: 20050901
  4. YASMIN [Suspect]
     Dosage: UNK UNK, QD
     Route: 048
     Dates: start: 20050301, end: 20050901
  5. TRICOR [Concomitant]
  6. PROMETHAZINE W/ CODEINE [Concomitant]
     Dosage: UNK
     Dates: start: 20061003
  7. AMOXICILLIN AND CLAVULANATE POTASSIUM [Concomitant]
     Dosage: UNK
     Dates: start: 20061003

REACTIONS (3)
  - GALLBLADDER DISORDER [None]
  - BILIARY COLIC [None]
  - CHOLECYSTITIS CHRONIC [None]
